FAERS Safety Report 23139119 (Version 1)
Quarter: 2023Q4

REPORT INFORMATION
  Report Type: Spontaneous
  Country: US (occurrence: US)
  Receive Date: 20231102
  Receipt Date: 20231102
  Transmission Date: 20240109
  Serious: Yes (Hospitalization)
  Sender: FDA-Public Use
  Company Number: US-OPKO PHARMACEUTICALS, LLC.-2023OPK00063

PATIENT

DRUGS (1)
  1. RAYALDEE [Suspect]
     Active Substance: CALCIFEDIOL
     Dosage: UNK

REACTIONS (1)
  - Hospitalisation [Unknown]

NARRATIVE: CASE EVENT DATE: 20230101
